FAERS Safety Report 21732431 (Version 4)
Quarter: 2023Q1

REPORT INFORMATION
  Report Type: Spontaneous
  Country: US (occurrence: US)
  Receive Date: 20221215
  Receipt Date: 20230323
  Transmission Date: 20230417
  Serious: No
  Sender: FDA-Public Use
  Company Number: US-LUPIN PHARMACEUTICALS INC.-2022-14298

PATIENT

DRUGS (1)
  1. GAVILYTE - C [Suspect]
     Active Substance: POLYETHYLENE GLYCOL 3350\POTASSIUM CHLORIDE\SODIUM BICARBONATE\SODIUM CHLORIDE\SODIUM SULFATE
     Indication: Colonoscopy
     Dosage: UNK, QD (1 TIME DOSE)
     Route: 048
     Dates: start: 20221204, end: 20221204

REACTIONS (4)
  - Product dose omission issue [Unknown]
  - Product packaging difficult to open [Unknown]
  - Product container issue [Unknown]
  - No adverse event [Unknown]
